FAERS Safety Report 5347469-6 (Version None)
Quarter: 2007Q2

REPORT INFORMATION
  Report Type: 
  Country: None (occurrence: None)
  Receive Date: 20070605
  Receipt Date: 20070605
  Transmission Date: 20071010
  Serious: Yes (Hospitalization)
  Sender: FDA-Public Use
  Company Number: None

PATIENT
  Sex: Male
  Weight: 77.1115 kg

DRUGS (19)
  1. DOCETAXEL 80MG/2ML (SANOFI-AVENTIS) [Suspect]
     Indication: NON-SMALL CELL LUNG CANCER
     Dosage: 70.9MG IVPB
     Route: 042
     Dates: start: 20070417
  2. DOCETAXEL 80MG/2ML (SANOFI-AVENTIS) [Suspect]
     Indication: NON-SMALL CELL LUNG CANCER
     Dosage: 70.9MG IVPB
     Route: 042
     Dates: start: 20070424
  3. DOCETAXEL 80MG/2ML (SANOFI-AVENTIS) [Suspect]
     Indication: NON-SMALL CELL LUNG CANCER
     Dosage: 70.9MG IVPB
     Route: 042
     Dates: start: 20070501
  4. DOCETAXEL 80MG/2ML (SANOFI-AVENTIS) [Suspect]
     Indication: NON-SMALL CELL LUNG CANCER
     Dosage: 70.9MG IVPB
     Route: 042
     Dates: start: 20070515
  5. CAPECITABINE 500MG AND 150MG TABLETS (ROCHE) [Suspect]
     Indication: NON-SMALL CELL LUNG CANCER
     Dosage: 1300 MG PO BID D5-18
     Route: 048
     Dates: start: 20070421, end: 20070504
  6. ZANTAC [Concomitant]
  7. CYMBALTA [Concomitant]
  8. XANAX [Concomitant]
  9. DECADRON [Concomitant]
  10. RESTORIL [Concomitant]
  11. COMPAZINE [Concomitant]
  12. DEXAMETHASONE OPHTH [Concomitant]
  13. MIACALCIN [Concomitant]
  14. LACTULOSE [Concomitant]
  15. OXYCONTIN [Concomitant]
  16. MARINOL [Concomitant]
  17. PERCOCET [Concomitant]
  18. MEGACE [Concomitant]
  19. ZOMETA [Concomitant]

REACTIONS (5)
  - ABDOMINAL PAIN [None]
  - CONSTIPATION [None]
  - DEHYDRATION [None]
  - NAUSEA [None]
  - VOMITING [None]
